FAERS Safety Report 9350976 (Version 1)
Quarter: 2013Q2

REPORT INFORMATION
  Report Type: Spontaneous
  Country: BE (occurrence: BE)
  Receive Date: 20130617
  Receipt Date: 20130617
  Transmission Date: 20140414
  Serious: Yes (Hospitalization, Other)
  Sender: FDA-Public Use
  Company Number: BE-JNJFOC-20130603892

PATIENT
  Age: 56 Year
  Sex: Male

DRUGS (7)
  1. REMICADE [Suspect]
     Indication: RHEUMATIC DISORDER
     Route: 042
     Dates: start: 20120531, end: 20120726
  2. REMICADE [Suspect]
     Indication: RHEUMATIC DISORDER
     Route: 042
     Dates: start: 20120404
  3. REMICADE [Suspect]
     Indication: RHEUMATIC DISORDER
     Route: 042
     Dates: start: 20120307
  4. REMICADE [Suspect]
     Indication: RHEUMATIC DISORDER
     Route: 042
     Dates: start: 20120222
  5. SALAZOPYRINE [Suspect]
     Indication: PRODUCT USED FOR UNKNOWN INDICATION
     Dosage: TOTAL DAILY DOSE 1500MG-1ST MONTH BEFORE MEALS; SHOULD HAVE BEEN INCREASED TO 3000MG AFTER 1ST MONTH
     Route: 048
     Dates: start: 20120321, end: 201204
  6. OMEPRAZOLE [Concomitant]
     Dosage: FOR MORE THAN 1 YEAR
     Route: 048
  7. BISOPROLOL [Concomitant]
     Dosage: FOR APPROXIMATELY 2 MONTHS
     Route: 048

REACTIONS (7)
  - Anaphylactic shock [Recovered/Resolved]
  - Cardiac arrest [Recovered/Resolved]
  - Pneumonia [Unknown]
  - Urinary tract infection [Unknown]
  - Influenza [Unknown]
  - Arrhythmia [Unknown]
  - Hypertension [Unknown]
